FAERS Safety Report 10648072 (Version 1)
Quarter: 2014Q4

REPORT INFORMATION
  Report Type: Spontaneous
  Country: US (occurrence: None)
  Receive Date: 20141211
  Receipt Date: 20141211
  Transmission Date: 20150529
  Serious: No
  Sender: FDA-Public Use
  Company Number: None

PATIENT

DRUGS (2)
  1. PANCURONIUM BROMIDE. [Suspect]
     Active Substance: PANCURONIUM BROMIDE
     Dosage: DOSAGE FORM; INJECTABLE, ADM ROUTE: INJECTION, TYPE: VIAL
     Route: 050
  2. ROCURONIUM BROMIDE. [Suspect]
     Active Substance: ROCURONIUM BROMIDE
     Dosage: DOSAGE FORM: INJECTABLE, ADM ROUTE: INJECTION, STRENGTH: 50 MG/5 ML, TYPE MULTIPLE DOSE VIAL, SIZE: 10 X 65 ML?
     Route: 050

REACTIONS (2)
  - Wrong drug administered [None]
  - Circumstance or information capable of leading to medication error [None]
